FAERS Safety Report 11416911 (Version 1)
Quarter: 2015Q3

REPORT INFORMATION
  Report Type: Spontaneous
  Country: US (occurrence: US)
  Receive Date: 20150825
  Receipt Date: 20150825
  Transmission Date: 20151125
  Serious: Yes (Hospitalization)
  Sender: FDA-Public Use
  Company Number: PHHY2015US100764

PATIENT
  Age: 32 Year
  Sex: Female

DRUGS (1)
  1. PARACETAMOL [Suspect]
     Active Substance: ACETAMINOPHEN
     Indication: BACK PAIN
     Dosage: 9 G, QD
     Route: 065

REACTIONS (3)
  - Stress cardiomyopathy [Recovered/Resolved]
  - Encephalopathy [Unknown]
  - Acute hepatic failure [Recovered/Resolved]
